FAERS Safety Report 15029561 (Version 1)
Quarter: 2018Q2

REPORT INFORMATION
  Report Type: Report from Study
  Country: BR (occurrence: BR)
  Receive Date: 20180619
  Receipt Date: 20180619
  Transmission Date: 20180711
  Serious: Yes (Other)
  Sender: FDA-Public Use
  Company Number: PHHY2017BR101671

PATIENT
  Age: 67 Year
  Sex: Female
  Weight: 54.5 kg

DRUGS (3)
  1. ACLASTA [Suspect]
     Active Substance: ZOLEDRONIC ACID
     Indication: OSTEOPOROSIS
     Dosage: 1 DF (5MG/100ML), Q12MO
     Route: 042
     Dates: start: 20150812
  2. ACLASTA [Suspect]
     Active Substance: ZOLEDRONIC ACID
     Indication: INTERVERTEBRAL DISC PROTRUSION
     Dosage: 1 DF (5MG/100ML), Q12MO
     Route: 042
     Dates: start: 2016, end: 2016
  3. ACLASTA [Suspect]
     Active Substance: ZOLEDRONIC ACID
     Indication: BONE DENSITY DECREASED

REACTIONS (8)
  - Nephrolithiasis [Unknown]
  - Renal cyst [Recovered/Resolved]
  - Feeling cold [Unknown]
  - Drug ineffective [Unknown]
  - Blood urine [Unknown]
  - Renal pain [Recovered/Resolved]
  - Pain [Recovering/Resolving]
  - Osteoarthritis [Unknown]

NARRATIVE: CASE EVENT DATE: 201611
